FAERS Safety Report 7391621-5 (Version None)
Quarter: 2011Q2

REPORT INFORMATION
  Report Type: 
  Country: None (occurrence: None)
  Receive Date: 20110404
  Receipt Date: 20110308
  Transmission Date: 20111010
  Serious: No
  Sender: FDA-Public Use
  Company Number: US-B.I. PHARMACEUTICALS,INC./RIDGEFIELD-2011-BP-07377BP

PATIENT
  Sex: Male

DRUGS (7)
  1. CEREFOLIN NAC [Concomitant]
     Route: 048
     Dates: start: 20090101
  2. AVANDAMET [Concomitant]
     Indication: DIABETES MELLITUS
     Route: 048
     Dates: start: 20060101
  3. PRADAXA [Suspect]
     Indication: ATRIAL FIBRILLATION
     Dosage: 300 MG
     Route: 048
     Dates: start: 20110213
  4. DIGOXIN [Concomitant]
     Indication: ATRIAL FIBRILLATION
     Dosage: 0.125 MG
     Route: 048
     Dates: start: 20100708
  5. LEXAPRO [Concomitant]
     Indication: DEPRESSION
     Dosage: 20 MG
     Route: 048
     Dates: start: 20100718
  6. LIPITOR [Concomitant]
     Indication: BLOOD CHOLESTEROL INCREASED
     Route: 048
     Dates: start: 20100216
  7. ZYRTEC SINUS [Concomitant]
     Indication: SINUSITIS
     Route: 048
     Dates: start: 20060101

REACTIONS (4)
  - DECREASED APPETITE [None]
  - CONSTIPATION [None]
  - DYSPEPSIA [None]
  - ABDOMINAL PAIN UPPER [None]
